FAERS Safety Report 7967714-8 (Version None)
Quarter: 2011Q4

REPORT INFORMATION
  Report Type: 
  Country: None (occurrence: None)
  Receive Date: 20111209
  Receipt Date: 20111129
  Transmission Date: 20120403
  Serious: Yes (Hospitalization)
  Sender: FDA-Public Use
  Company Number: US-ELI_LILLY_AND_COMPANY-US201007001214

PATIENT
  Sex: Female
  Weight: 99.32 kg

DRUGS (10)
  1. H7T-MC-TADN PH III TAXUS LIBERTE STENT S [Suspect]
     Indication: ACUTE CORONARY SYNDROME
     Dosage: 10 MG, DAILY (1/D)
     Dates: start: 20100701
  2. SIMVASTATIN [Concomitant]
     Indication: DYSLIPIDAEMIA
     Dosage: 80 MG, DAILY (1/D)
     Route: 048
  3. BENAZEPRIL HYDROCHLORIDE [Concomitant]
     Indication: HYPERTENSION
     Dosage: 40 MG, 2/D
     Route: 048
  4. SOTALOL HCL [Concomitant]
     Indication: SUPRAVENTRICULAR TACHYCARDIA
     Dosage: 120 MG, 2/D
     Route: 048
  5. OXYBUTYNIN [Concomitant]
     Indication: BLADDER DISORDER
     Dosage: 5 MG, DAILY (1/D)
     Route: 048
  6. HYDROCHLOROTHIAZIDE [Concomitant]
     Indication: HYPERTENSION
     Dosage: 25 MG, DAILY (1/D)
     Route: 048
  7. ASPIRIN [Concomitant]
     Indication: ACUTE CORONARY SYNDROME
     Dosage: 162 MG, DAILY (1/D)
  8. INSULIN [Concomitant]
     Indication: DIABETES MELLITUS
     Dosage: 90 IU, DAILY (1/D)
     Route: 058
  9. NOVOLOG [Concomitant]
     Indication: DIABETES MELLITUS
     Dosage: 1 IU, DAILY (1/D)
     Route: 058
  10. AMLODIPINE [Concomitant]
     Indication: HYPERTENSION
     Dosage: 5 MG, DAILY (1/D)
     Route: 048

REACTIONS (1)
  - CEREBROVASCULAR ACCIDENT [None]
